FAERS Safety Report 4470410-5 (Version None)
Quarter: 2004Q3

REPORT INFORMATION
  Report Type: 
  Country: None (occurrence: None)
  Receive Date: 20040910
  Receipt Date: 20040607
  Transmission Date: 20050211
  Serious: No
  Sender: FDA-Public Use
  Company Number: M04-341-063

PATIENT
  Age: 75 Year
  Sex: Male

DRUGS (8)
  1. VELCADE [Suspect]
     Indication: MULTIPLE MYELOMA
     Dosage: 1.3 MG/M2, INTRAVENOUS
     Route: 042
     Dates: start: 20030601
  2. AVAPRO [Concomitant]
  3. EFFEXOR [Concomitant]
  4. NEURONTIN [Concomitant]
  5. VERAPAMIL [Concomitant]
  6. SIMVASTATIN [Concomitant]
  7. NEXIUM [Concomitant]
  8. BIAXIN [Concomitant]

REACTIONS (4)
  - BLOOD PRESSURE FLUCTUATION [None]
  - DIZZINESS [None]
  - NAUSEA [None]
  - NEUROPATHY [None]
